FAERS Safety Report 10593412 (Version 2)
Quarter: 2014Q4

REPORT INFORMATION
  Report Type: Spontaneous
  Country: JP (occurrence: JP)
  Receive Date: 20141119
  Receipt Date: 20141125
  Transmission Date: 20150529
  Serious: Yes (Death, Other)
  Sender: FDA-Public Use
  Company Number: PHHY2014JP147983

PATIENT
  Age: 69 Year
  Sex: Male

DRUGS (2)
  1. CARBOPLATIN. [Suspect]
     Active Substance: CARBOPLATIN
     Indication: SMALL CELL LUNG CANCER
     Route: 065
  2. ETOPOSIDE. [Suspect]
     Active Substance: ETOPOSIDE
     Indication: SMALL CELL LUNG CANCER
     Dosage: 100 MG/M2, UNK
     Route: 065

REACTIONS (7)
  - Metastases to liver [Unknown]
  - Metastases to lung [Unknown]
  - Hepatic necrosis [Unknown]
  - Neutrophil count decreased [Unknown]
  - Pulmonary mass [Unknown]
  - Peritoneal haemorrhage [Fatal]
  - Mass [Unknown]
